FAERS Safety Report 22226252 (Version 2)
Quarter: 2023Q2

REPORT INFORMATION
  Report Type: Report from Study
  Country: GB (occurrence: GB)
  Receive Date: 20230419
  Receipt Date: 20230430
  Transmission Date: 20230721
  Serious: Yes (Death, Other)
  Sender: FDA-Public Use
  Company Number: GB-002147023-NVSC2023GB087709

PATIENT
  Age: 68 Year
  Sex: Male

DRUGS (1)
  1. PLUVICTO [Suspect]
     Active Substance: LUTETIUM LU-177 VIPIVOTIDE TETRAXETAN
     Indication: Hormone-refractory prostate cancer
     Dosage: 7.4 GBQ
     Route: 065
     Dates: start: 20230202, end: 20230316

REACTIONS (4)
  - Pneumonia [Fatal]
  - Dyspnoea [Fatal]
  - Septic shock [Unknown]
  - Hypotension [Unknown]

NARRATIVE: CASE EVENT DATE: 20230412
